FAERS Safety Report 25968802 (Version 1)
Quarter: 2025Q4

REPORT INFORMATION
  Report Type: Spontaneous
  Country: US (occurrence: None)
  Receive Date: 20251027
  Receipt Date: 20251027
  Transmission Date: 20260118
  Serious: Yes (Hospitalization)
  Sender: FDA-CTU
  Company Number: None

PATIENT
  Age: 71 Year
  Sex: Male

DRUGS (7)
  1. ELIGARD [Suspect]
     Active Substance: LEUPROLIDE ACETATE
     Indication: Prostate cancer
     Dosage: OTHER FREQUENCY : EVERY 6 MONTHS;?
     Route: 058
     Dates: start: 20250429
  2. BICALUTAMIDE [Concomitant]
     Active Substance: BICALUTAMIDE
  3. HYDRALAZINE HYDROCHLORIDE [Concomitant]
     Active Substance: HYDRALAZINE HYDROCHLORIDE
  4. irbesartan/hctz 300112.5mg [Concomitant]
  5. METFORMIN [Concomitant]
     Active Substance: METFORMIN HYDROCHLORIDE
  6. SIMVASTATIN [Concomitant]
     Active Substance: SIMVASTATIN
  7. TAMSULOSIN [Concomitant]
     Active Substance: TAMSULOSIN

REACTIONS (1)
  - Cerebrovascular accident [None]
